FAERS Safety Report 10169209 (Version 1)
Quarter: 2014Q2

REPORT INFORMATION
  Report Type: Report from Study
  Country: FR (occurrence: FR)
  Receive Date: 20140513
  Receipt Date: 20140513
  Transmission Date: 20141212
  Serious: Yes (Hospitalization)
  Sender: FDA-Public Use
  Company Number: FR-PFIZER INC-2014126750

PATIENT
  Age: 64 Year
  Sex: Male
  Weight: 98 kg

DRUGS (3)
  1. EPLERENONE [Suspect]
     Dosage: UNK
  2. BISOPROLOL FUMARATE [Suspect]
  3. PERINDOPRIL [Suspect]

REACTIONS (1)
  - Syncope [Recovered/Resolved]
